FAERS Safety Report 4724117-7 (Version None)
Quarter: 2005Q3

REPORT INFORMATION
  Report Type: 
  Country: None (occurrence: None)
  Receive Date: 20050722
  Receipt Date: 20050629
  Transmission Date: 20060218
  Serious: Yes (Other)
  Sender: FDA-Public Use
  Company Number: 2005-01526

PATIENT
  Age: 53 Year
  Sex: Female

DRUGS (1)
  1. VELCADE [Suspect]
     Dosage: 1.30 MG/M2, 2/WEEK
     Dates: start: 20050128

REACTIONS (3)
  - OPTIC NEURITIS [None]
  - VISION BLURRED [None]
  - VISUAL DISTURBANCE [None]
